FAERS Safety Report 9314179 (Version 1)
Quarter: 2013Q2

REPORT INFORMATION
  Report Type: Spontaneous
  Country: DK (occurrence: None)
  Receive Date: 20130521
  Receipt Date: 20130521
  Transmission Date: 20140414
  Serious: Yes (Hospitalization)
  Sender: FDA-Public Use
  Company Number: IE-000708

PATIENT
  Sex: Female
  Weight: 33 kg

DRUGS (18)
  1. TEDUGLUTIDE [Suspect]
     Indication: GASTROINTESTINAL DISORDER
     Route: 058
     Dates: start: 20130221, end: 20130426
  2. HYDROCORTISONE [Concomitant]
  3. FLUDROCORTISONE [Concomitant]
  4. PARATHYROID HORMONE [Concomitant]
  5. ONE ALPHA [Concomitant]
  6. CREON [Concomitant]
  7. DERMOVATE [Concomitant]
  8. FUCIDIN  /00065701/ [Concomitant]
  9. DUROGESIC [Concomitant]
  10. LEVETIRACETAM [Concomitant]
  11. FORCEVAL [Concomitant]
  12. BIOTIN [Concomitant]
  13. ENSURE PLUS [Concomitant]
  14. FENTANYL [Concomitant]
  15. PARACETAMOL [Concomitant]
  16. NOVORAPID [Concomitant]
  17. CALCIUM GLUCONATE [Concomitant]
  18. MAGNESIUM SULFATE [Concomitant]

REACTIONS (1)
  - Pneumonia streptococcal [None]
